FAERS Safety Report 17424136 (Version 3)
Quarter: 2020Q2

REPORT INFORMATION
  Report Type: Spontaneous
  Country: US (occurrence: US)
  Receive Date: 20200217
  Receipt Date: 20200526
  Transmission Date: 20200713
  Serious: Yes (Hospitalization, Other)
  Sender: FDA-Public Use
  Company Number: US-GILEAD-2020-0450654

PATIENT
  Age: 48 Year
  Sex: Male

DRUGS (70)
  1. GENVOYA [Concomitant]
     Active Substance: COBICISTAT\ELVITEGRAVIR\EMTRICITABINE\TENOFOVIR ALAFENAMIDE FUMARATE
  2. AMLODIPINE [Concomitant]
     Active Substance: AMLODIPINE BESYLATE
  3. METRONIDAZOLE. [Concomitant]
     Active Substance: METRONIDAZOLE
  4. DEPO-TESTOSTERONE [Concomitant]
     Active Substance: TESTOSTERONE CYPIONATE
  5. CLOTRIMAZOLE. [Concomitant]
     Active Substance: CLOTRIMAZOLE
  6. ZIAGEN [Concomitant]
     Active Substance: ABACAVIR SULFATE
  7. PREZISTA [Concomitant]
     Active Substance: DARUNAVIR ETHANOLATE
  8. ANDROGEL [Concomitant]
     Active Substance: TESTOSTERONE
  9. CLINDAMYCIN. [Concomitant]
     Active Substance: CLINDAMYCIN
  10. SELENIUM [Concomitant]
     Active Substance: SELENIUM
  11. LONOX [Concomitant]
     Active Substance: ATROPINE SULFATE\DIPHENOXYLATE HYDROCHLORIDE
  12. RANIBIZUMAB. [Concomitant]
     Active Substance: RANIBIZUMAB
  13. BEVACIZUMAB. [Concomitant]
     Active Substance: BEVACIZUMAB
  14. ALLOPURINOL. [Concomitant]
     Active Substance: ALLOPURINOL
  15. POTASSIUM CHLORIDE. [Concomitant]
     Active Substance: POTASSIUM CHLORIDE
  16. ABACAVIR. [Concomitant]
     Active Substance: ABACAVIR
  17. FAMOTIDINE. [Concomitant]
     Active Substance: FAMOTIDINE
  18. PREDNISONE. [Concomitant]
     Active Substance: PREDNISONE
  19. INTELENCE [Concomitant]
     Active Substance: ETRAVIRINE
  20. CYANOCOBALAMIN. [Concomitant]
     Active Substance: CYANOCOBALAMIN
  21. COMBIVENT [Concomitant]
     Active Substance: ALBUTEROL SULFATE\IPRATROPIUM BROMIDE
  22. PANTOPRAZOLE [Concomitant]
     Active Substance: PANTOPRAZOLE
  23. DULOXETINE. [Concomitant]
     Active Substance: DULOXETINE
  24. VIREAD [Suspect]
     Active Substance: TENOFOVIR DISOPROXIL FUMARATE
     Indication: HIV INFECTION
     Dosage: 1 DOSAGE FORM, QD
     Route: 048
     Dates: start: 20070109, end: 200704
  25. HUMAN GROWTH HORMONE, RECOMBINANT [Suspect]
     Active Substance: SOMATROPIN
     Indication: PRODUCT USED FOR UNKNOWN INDICATION
     Dosage: UNK
     Route: 065
  26. BUPROPION. [Concomitant]
     Active Substance: BUPROPION
  27. FLUNISOLIDE. [Concomitant]
     Active Substance: FLUNISOLIDE
  28. ADDERALL [Concomitant]
     Active Substance: AMPHETAMINE ASPARTATE\AMPHETAMINE SULFATE\DEXTROAMPHETAMINE SACCHARATE\DEXTROAMPHETAMINE SULFATE
  29. FLUCONAZOLE. [Concomitant]
     Active Substance: FLUCONAZOLE
  30. DOXYCYCLINE. [Concomitant]
     Active Substance: DOXYCYCLINE
  31. MIRTAZAPINE. [Concomitant]
     Active Substance: MIRTAZAPINE
  32. LIPITOR [Concomitant]
     Active Substance: ATORVASTATIN CALCIUM
  33. AMOXICILLIN AND CLAVULANATE POTASSIUM [Concomitant]
     Active Substance: AMOXICILLIN\CLAVULANATE POTASSIUM
  34. SUCRALFATE. [Concomitant]
     Active Substance: SUCRALFATE
  35. BACLOFEN. [Concomitant]
     Active Substance: BACLOFEN
  36. MELATONIN [Concomitant]
     Active Substance: MELATONIN
  37. NORTRIPTYLINE [Concomitant]
     Active Substance: NORTRIPTYLINE
  38. TRUVADA [Suspect]
     Active Substance: EMTRICITABINE\TENOFOVIR DISOPROXIL FUMARATE
     Indication: HIV INFECTION
     Dosage: 1 DOSAGE FORM, QD
     Route: 048
     Dates: start: 20121017, end: 20141013
  39. VIRACEPT [Concomitant]
     Active Substance: NELFINAVIR MESYLATE
  40. METOPROLOL TARTRATE. [Concomitant]
     Active Substance: METOPROLOL TARTRATE
  41. LEVITRA [Concomitant]
     Active Substance: VARDENAFIL HYDROCHLORIDE
  42. NORVIR [Concomitant]
     Active Substance: RITONAVIR
  43. METHYLPHENIDAT [Concomitant]
     Active Substance: METHYLPHENIDATE
  44. OMEGA-3 FISH OIL [Concomitant]
     Active Substance: FISH OIL\OMEGA-3 FATTY ACIDS
  45. TERAZOSIN [Concomitant]
     Active Substance: TERAZOSIN HYDROCHLORIDE
  46. AMITIZA [Concomitant]
     Active Substance: LUBIPROSTONE
  47. VIREAD [Suspect]
     Active Substance: TENOFOVIR DISOPROXIL FUMARATE
     Dosage: 1 DOSAGE FORM, QD
     Route: 048
     Dates: start: 201101, end: 20121024
  48. ISENTRESS [Suspect]
     Active Substance: RALTEGRAVIR POTASSIUM
     Indication: HIV INFECTION
     Dosage: UNK
     Route: 065
  49. ACYCLOVIR [ACICLOVIR] [Concomitant]
     Active Substance: ACYCLOVIR
  50. OMEPRAZOLE. [Concomitant]
     Active Substance: OMEPRAZOLE
  51. K-TAB [Concomitant]
     Active Substance: POTASSIUM CHLORIDE
  52. HYDROCHLOROTHIAZIDE. [Concomitant]
     Active Substance: HYDROCHLOROTHIAZIDE
  53. AZITHROMYCIN ANHYDROUS. [Concomitant]
     Active Substance: AZITHROMYCIN ANHYDROUS
  54. QVAR [Concomitant]
     Active Substance: BECLOMETHASONE DIPROPIONATE
  55. EGRIFTA [Concomitant]
     Active Substance: TESAMORELIN ACETATE
  56. NORTRIPTYLIN [Concomitant]
     Active Substance: NORTRIPTYLINE
  57. TIVICAY [Concomitant]
     Active Substance: DOLUTEGRAVIR SODIUM
  58. SUSTIVA [Concomitant]
     Active Substance: EFAVIRENZ
  59. FLURAZEPAM [Concomitant]
     Active Substance: FLURAZEPAM HYDROCHLORIDE
  60. FUROSEMIDE. [Concomitant]
     Active Substance: FUROSEMIDE
  61. RAYALDEE [Concomitant]
     Active Substance: CALCIFEDIOL
  62. LORAZEPAM. [Concomitant]
     Active Substance: LORAZEPAM
  63. FLUTICASONE PROPIONATE. [Concomitant]
     Active Substance: FLUTICASONE PROPIONATE
  64. MELOXICAM. [Concomitant]
     Active Substance: MELOXICAM
  65. LISINOPRIL. [Concomitant]
     Active Substance: LISINOPRIL
  66. CEFACLOR. [Concomitant]
     Active Substance: CEFACLOR
  67. ASPIRIN 81 [Concomitant]
     Active Substance: ASPIRIN
  68. ELIQUIS [Concomitant]
     Active Substance: APIXABAN
  69. GABAPENTIN. [Concomitant]
     Active Substance: GABAPENTIN
  70. VALACYCLOVIR HCL [Concomitant]
     Active Substance: VALACYCLOVIR HYDROCHLORIDE

REACTIONS (11)
  - Emotional distress [Unknown]
  - Anhedonia [Unknown]
  - Hip arthroplasty [Not Recovered/Not Resolved]
  - Renal failure [Unknown]
  - Anxiety [Unknown]
  - Chronic kidney disease [Not Recovered/Not Resolved]
  - Acute kidney injury [Not Recovered/Not Resolved]
  - Bone density decreased [Unknown]
  - Pain [Unknown]
  - Economic problem [Unknown]
  - Hip arthroplasty [Not Recovered/Not Resolved]

NARRATIVE: CASE EVENT DATE: 20100506
